FAERS Safety Report 9253653 (Version 3)
Quarter: 2013Q3

REPORT INFORMATION
  Report Type: Spontaneous
  Country: US (occurrence: US)
  Receive Date: 20130425
  Receipt Date: 20130930
  Transmission Date: 20140515
  Serious: Yes (Hospitalization, Other)
  Sender: FDA-Public Use
  Company Number: US-ASTRAZENECA-2013SE27560

PATIENT
  Age: 565 Month
  Sex: Female
  Weight: 82.6 kg

DRUGS (5)
  1. NEXIUM [Suspect]
     Indication: GASTROOESOPHAGEAL REFLUX DISEASE
     Dosage: ONCE EVERYDAY IN THE MORNING
     Route: 048
     Dates: start: 2008, end: 2010
  2. NEXIUM [Suspect]
     Indication: GASTROOESOPHAGEAL REFLUX DISEASE
     Route: 048
  3. PRILOSEC OTC [Suspect]
     Indication: GASTROOESOPHAGEAL REFLUX DISEASE
     Route: 048
     Dates: start: 2004, end: 2008
  4. PREVACID [Suspect]
     Route: 065
     Dates: start: 2005
  5. RANITIDINE [Concomitant]
     Indication: GASTROOESOPHAGEAL REFLUX DISEASE

REACTIONS (15)
  - Hip fracture [Unknown]
  - Rib deformity [Unknown]
  - Arthropathy [Unknown]
  - Osteoporosis [Unknown]
  - Calcium deficiency [Unknown]
  - Systemic lupus erythematosus [Unknown]
  - Bone disorder [Unknown]
  - Multiple fractures [Unknown]
  - Fall [Unknown]
  - Foot fracture [Unknown]
  - Cataract [Unknown]
  - Glaucoma [Unknown]
  - Rheumatoid arthritis [Unknown]
  - Joint injury [Unknown]
  - Depression [Unknown]
